FAERS Safety Report 15822868 (Version 2)
Quarter: 2019Q1

REPORT INFORMATION
  Report Type: Report from Study
  Country: CN (occurrence: CN)
  Receive Date: 20190114
  Receipt Date: 20190203
  Transmission Date: 20190417
  Serious: Yes (Life-Threatening, Hospitalization, Other)
  Sender: FDA-Public Use
  Company Number: CN-CELGENEUS-CHN-20180904197

PATIENT
  Age: 68 Year
  Sex: Male
  Weight: 69.5 kg

DRUGS (10)
  1. ABRAXANE [Suspect]
     Active Substance: PACLITAXEL
     Dosage: 100 MG/M2, Q3WK
     Route: 042
     Dates: start: 20180828, end: 20180828
  2. ABRAXANE [Suspect]
     Active Substance: PACLITAXEL
     Indication: NON-SMALL CELL LUNG CANCER
     Dosage: 100 MG/M2, Q3WK
     Route: 042
     Dates: start: 20180815, end: 20180815
  3. COMPOUND LIQUORICE [Concomitant]
     Indication: PRODUCTIVE COUGH
     Dosage: 10 ML, TID
     Route: 048
     Dates: start: 20180810, end: 20180814
  4. BGB-A317/TISLELIZUMAB [Suspect]
     Active Substance: TISLELIZUMAB
     Indication: NON-SMALL CELL LUNG CANCER
     Dosage: 200 MG, Q3WK
     Route: 042
     Dates: start: 20180815, end: 20180815
  5. BGB-A317/TISLELIZUMAB [Suspect]
     Active Substance: TISLELIZUMAB
     Dosage: 200 MG, Q3WK
     Route: 042
     Dates: start: 20180828, end: 20180828
  6. AMBROXOL HYDROCHLORIDE [Concomitant]
     Active Substance: AMBROXOL HYDROCHLORIDE
     Indication: PRODUCTIVE COUGH
     Dosage: 30 MG, TID
     Route: 048
     Dates: start: 20180813, end: 20180815
  7. CARBOPLATIN. [Suspect]
     Active Substance: CARBOPLATIN
     Indication: NON-SMALL CELL LUNG CANCER
     Dosage: AUC 5, DAY 1 OF EACH CYCLE
     Route: 042
     Dates: start: 20180815, end: 20180815
  8. CELEBREX [Concomitant]
     Active Substance: CELECOXIB
     Indication: ANALGESIC THERAPY
     Dosage: 0.2 G, BID
     Route: 048
     Dates: start: 20180810, end: 20180903
  9. CARBOPLATIN. [Suspect]
     Active Substance: CARBOPLATIN
     Dosage: AUC 5, DAY 1 OF EACH CYCLE
     Route: 042
     Dates: start: 20180828, end: 20180828
  10. OXYCODONE [Concomitant]
     Active Substance: OXYCODONE
     Indication: ANALGESIC THERAPY
     Dosage: 10 MG, Q12H
     Route: 048
     Dates: start: 20180810, end: 20180819

REACTIONS (5)
  - Febrile neutropenia [Recovered/Resolved]
  - Febrile convulsion [Recovered/Resolved]
  - Septic shock [Recovered/Resolved]
  - Immune-mediated hepatitis [Recovered/Resolved]
  - Pneumonitis [Recovered/Resolved]

NARRATIVE: CASE EVENT DATE: 20180903
